FAERS Safety Report 18385361 (Version 3)
Quarter: 2020Q4

REPORT INFORMATION
  Report Type: Spontaneous
  Country: PT (occurrence: PT)
  Receive Date: 20201014
  Receipt Date: 20201026
  Transmission Date: 20210114
  Serious: Yes (Other)
  Sender: FDA-Public Use
  Company Number: PT-AUROBINDO-AUR-APL-2020-051832

PATIENT
  Age: 84 Year
  Sex: Female

DRUGS (4)
  1. CIPROFLOXACIN. [Suspect]
     Active Substance: CIPROFLOXACIN
     Indication: CELLULITIS
     Dosage: UNK (DOSE)
     Route: 065
  2. METAMIZOLE [Interacting]
     Active Substance: METAMIZOLE
     Indication: CELLULITIS
     Dosage: UNK (DOSE)
     Route: 065
  3. TRAMADOL. [Interacting]
     Active Substance: TRAMADOL
     Indication: CELLULITIS
     Dosage: UNK
     Route: 065
  4. ACENOCOUMAROL [Interacting]
     Active Substance: ACENOCOUMAROL
     Indication: ANTICOAGULANT THERAPY
     Dosage: UNK (DOSE)
     Route: 065

REACTIONS (5)
  - Blood disorder [Unknown]
  - Activated partial thromboplastin time prolonged [Unknown]
  - Haematemesis [Unknown]
  - Drug interaction [Unknown]
  - Ocular hyperaemia [Unknown]
